FAERS Safety Report 9346566 (Version 2)
Quarter: 2014Q3

REPORT INFORMATION
  Report Type: Spontaneous
  Country: US (occurrence: US)
  Receive Date: 20130613
  Receipt Date: 20140703
  Transmission Date: 20150326
  Serious: Yes (Hospitalization)
  Sender: FDA-Public Use
  Company Number: US-BAYER-2013-072584

PATIENT
  Age: 19 Year
  Sex: Female
  Weight: 57.6 kg

DRUGS (4)
  1. GIANVI [Suspect]
     Active Substance: DROSPIRENONE\ETHINYL ESTRADIOL
     Indication: ENDOMETRIOSIS
     Dosage: UNK
     Dates: start: 20090709, end: 201105
  2. YAZ [Suspect]
     Active Substance: DROSPIRENONE\ETHINYL ESTRADIOL
     Indication: ENDOMETRIOSIS
     Dosage: UNK
     Dates: start: 2006, end: 2009
  3. IBUPROFEN. [Concomitant]
     Active Substance: IBUPROFEN
     Indication: PAIN
     Dosage: UNK
     Dates: start: 20110522
  4. IBUPROFEN. [Concomitant]
     Active Substance: IBUPROFEN
     Indication: PAIN
     Dosage: UNK
     Dates: start: 20110518

REACTIONS (7)
  - Fear of disease [None]
  - Injury [None]
  - Thrombophlebitis superficial [None]
  - Pelvic venous thrombosis [None]
  - Pain [None]
  - Vena cava thrombosis [None]
  - Off label use [None]

NARRATIVE: CASE EVENT DATE: 20110523
